FAERS Safety Report 8260806 (Version 9)
Quarter: 2014Q1

REPORT INFORMATION
  Report Type: Spontaneous
  Country: US (occurrence: US)
  Receive Date: 20111123
  Receipt Date: 20140120
  Transmission Date: 20141002
  Serious: Yes (Hospitalization, Congenital Anomaly, Other)
  Sender: FDA-Public Use
  Company Number: US-JNJFOC-20111107265

PATIENT
  Sex: Female

DRUGS (10)
  1. TOPAMAX [Suspect]
     Indication: FOETAL EXPOSURE DURING PREGNANCY
     Route: 064
     Dates: start: 2009
  2. PARACETAMOL [Suspect]
     Route: 064
  3. PARACETAMOL [Suspect]
     Indication: FOETAL EXPOSURE DURING PREGNANCY
     Route: 064
  4. LEXAPRO [Suspect]
     Indication: FOETAL EXPOSURE DURING PREGNANCY
     Route: 064
  5. LEVOTHYROXINE [Suspect]
     Indication: FOETAL EXPOSURE DURING PREGNANCY
     Route: 064
  6. VICODIN [Suspect]
     Indication: FOETAL EXPOSURE DURING PREGNANCY
     Route: 064
  7. SUBOXONE [Suspect]
     Indication: FOETAL EXPOSURE DURING PREGNANCY
     Route: 064
  8. PRENATAL VITAMINS [Suspect]
     Indication: FOETAL EXPOSURE DURING PREGNANCY
     Route: 064
  9. OPIOIDS NOS [Suspect]
     Indication: FOETAL EXPOSURE DURING PREGNANCY
     Route: 064
  10. SUBUTEX [Suspect]
     Indication: FOETAL EXPOSURE DURING PREGNANCY
     Route: 064

REACTIONS (12)
  - Motor developmental delay [Unknown]
  - Cleft palate [Recovering/Resolving]
  - Conductive deafness [Recovered/Resolved]
  - Jaundice neonatal [Unknown]
  - Speech disorder [Recovering/Resolving]
  - Feeding disorder [Unknown]
  - Eustachian tube dysfunction [Unknown]
  - Otitis media chronic [Unknown]
  - Weight decreased [Unknown]
  - Apnoea neonatal [Unknown]
  - Fistula [Unknown]
  - Bradycardia [Unknown]
